FAERS Safety Report 13520506 (Version 1)
Quarter: 2017Q2

REPORT INFORMATION
  Report Type: Report from Study
  Country: AT (occurrence: AT)
  Receive Date: 20170508
  Receipt Date: 20170508
  Transmission Date: 20170830
  Serious: Yes (Other)
  Sender: FDA-Public Use
  Company Number: AT-ROCHE-1931391

PATIENT
  Age: 18 Year

DRUGS (1)
  1. MYCOPHENOLATE MOFETIL. [Suspect]
     Active Substance: MYCOPHENOLATE MOFETIL
     Indication: STEM CELL TRANSPLANT
     Route: 065

REACTIONS (4)
  - Acute respiratory distress syndrome [Unknown]
  - Cytomegalovirus infection [Unknown]
  - Pneumocystis jirovecii pneumonia [Unknown]
  - Pneumonia [Unknown]
